FAERS Safety Report 7559796-2 (Version None)
Quarter: 2011Q2

REPORT INFORMATION
  Report Type: 
  Country: None (occurrence: None)
  Receive Date: 20110621
  Receipt Date: 20110608
  Transmission Date: 20111010
  Serious: Yes (Hospitalization)
  Sender: FDA-Public Use
  Company Number: US-ROCHE-782794

PATIENT
  Sex: Female
  Weight: 104.5 kg

DRUGS (3)
  1. OXALIPLATIN [Concomitant]
     Indication: CHEMOTHERAPY
     Route: 042
  2. CAPECITABINE [Suspect]
     Route: 048
  3. CAPECITABINE [Suspect]
     Route: 048
     Dates: start: 20110207, end: 20110413

REACTIONS (3)
  - PALMAR-PLANTAR ERYTHRODYSAESTHESIA SYNDROME [None]
  - INTESTINAL OBSTRUCTION [None]
  - GASTROOESOPHAGEAL REFLUX DISEASE [None]
